FAERS Safety Report 7978282-9 (Version None)
Quarter: 2011Q4

REPORT INFORMATION
  Report Type: 
  Country: None (occurrence: None)
  Receive Date: 20111206
  Receipt Date: 20111122
  Transmission Date: 20120403
  Serious: Yes (Other)
  Sender: FDA-Public Use
  Company Number: 2011SP054794

PATIENT
  Sex: Male

DRUGS (1)
  1. PEGATRON (PEGYLATED INTERFERON ALFA-2B W/RIBAVIRIN) [Suspect]
     Indication: PRODUCT USED FOR UNKNOWN INDICATION

REACTIONS (8)
  - LOSS OF CONTROL OF LEGS [None]
  - ASTHENIA [None]
  - MUSCLE SPASMS [None]
  - FATIGUE [None]
  - MUSCLE TIGHTNESS [None]
  - INFLUENZA LIKE ILLNESS [None]
  - PARAESTHESIA [None]
  - MUSCULAR WEAKNESS [None]
